FAERS Safety Report 14616508 (Version 2)
Quarter: 2018Q1

REPORT INFORMATION
  Report Type: Report from Study
  Country: US (occurrence: US)
  Receive Date: 20180309
  Receipt Date: 20180329
  Transmission Date: 20180509
  Serious: Yes (Hospitalization, Other)
  Sender: FDA-Public Use
  Company Number: US-TEVA-2018-US-866073

PATIENT
  Age: 68 Year
  Sex: Female

DRUGS (3)
  1. TAMIFLU [Interacting]
     Active Substance: OSELTAMIVIR PHOSPHATE
     Route: 065
  2. COPAXONE [Suspect]
     Active Substance: GLATIRAMER ACETATE
     Indication: MULTIPLE SCLEROSIS
     Route: 058
     Dates: start: 20170825, end: 20180213
  3. COPAXONE [Interacting]
     Active Substance: GLATIRAMER ACETATE
     Route: 058
     Dates: start: 20180309

REACTIONS (9)
  - Dyspnoea [Unknown]
  - Decreased appetite [Unknown]
  - Chills [Unknown]
  - Lethargy [Unknown]
  - Myalgia [Unknown]
  - Drug interaction [Unknown]
  - Pneumonia [Unknown]
  - Pyrexia [Unknown]
  - Muscle spasms [Unknown]

NARRATIVE: CASE EVENT DATE: 2018
